FAERS Safety Report 23579510 (Version 1)
Quarter: 2024Q1

REPORT INFORMATION
  Report Type: Other
  Country: ES (occurrence: ES)
  Receive Date: 20240229
  Receipt Date: 20240229
  Transmission Date: 20240410
  Serious: Yes (Death)
  Sender: FDA-Public Use
  Company Number: ES-B.Braun Medical Inc.-2153797

PATIENT
  Age: 54 Year
  Sex: Female

DRUGS (6)
  1. ACETAMINOPHEN [Suspect]
     Active Substance: ACETAMINOPHEN
  2. DICLOFENAC [Suspect]
     Active Substance: DICLOFENAC
  3. CLORAZEPATE DIPOTASSIUM [Suspect]
     Active Substance: CLORAZEPATE DIPOTASSIUM
  4. DEXKETOPROFEN [Suspect]
     Active Substance: DEXKETOPROFEN
  5. LORMETAZEPAM [Suspect]
     Active Substance: LORMETAZEPAM
  6. AMOXICILLIN [Suspect]
     Active Substance: AMOXICILLIN

REACTIONS (11)
  - Acute hepatic failure [Fatal]
  - Drug abuse [Fatal]
  - Intentional overdose [Fatal]
  - Off label use [Fatal]
  - Pancreatic failure [Fatal]
  - Renal failure [Fatal]
  - Shock [Fatal]
  - Coagulopathy [Fatal]
  - Hyperglycaemia [Fatal]
  - Metabolic acidosis [Fatal]
  - Toxicity to various agents [Fatal]
